FAERS Safety Report 14298589 (Version 2)
Quarter: 2017Q4

REPORT INFORMATION
  Report Type: Report from Study
  Country: FR (occurrence: FR)
  Receive Date: 20171218
  Receipt Date: 20171219
  Transmission Date: 20180321
  Serious: Yes (Life-Threatening, Hospitalization, Other)
  Sender: FDA-Public Use
  Company Number: FR-009507513-1709FRA003797

PATIENT
  Age: 60 Year
  Sex: Female
  Weight: 53 kg

DRUGS (14)
  1. PEMBROLIZUMAB. [Suspect]
     Active Substance: PEMBROLIZUMAB
     Indication: ANAL SQUAMOUS CELL CARCINOMA
     Dosage: 10 MG/KG, QOW
     Route: 042
     Dates: start: 20140404, end: 20170816
  2. ACETAMINOPHEN. [Concomitant]
     Active Substance: ACETAMINOPHEN
     Indication: JUGULAR VEIN THROMBOSIS
     Dosage: 500 MG DAILY, PRN
     Route: 048
     Dates: start: 20170830, end: 20170918
  3. SODIUM BICARBONATE. [Concomitant]
     Active Substance: SODIUM BICARBONATE
     Indication: STOMATITIS
     Dosage: 1 APPLICATION, TID
     Route: 002
     Dates: start: 20170301
  4. CLARELUX [Concomitant]
     Active Substance: CLOBETASOL PROPIONATE
     Indication: VULVOVAGINAL DRYNESS
     Dosage: 1 APPLICATION DAILY, PRN
     Route: 061
     Dates: start: 20170504
  5. MYCOCEUTICS GANOCOR [Concomitant]
     Indication: ASTHENIA
     Dosage: UNK, UNKNOWN
     Route: 048
     Dates: start: 20160311
  6. INNOHEP [Concomitant]
     Active Substance: TINZAPARIN SODIUM
     Indication: JUGULAR VEIN THROMBOSIS
     Dosage: 10000 IU, QD
     Route: 058
     Dates: start: 20170830, end: 20170910
  7. IMOVANE [Concomitant]
     Active Substance: ZOPICLONE
     Indication: INSOMNIA
     Dosage: 7.5 MG, QD
     Route: 048
     Dates: start: 201209
  8. PIASCLEDINE [Concomitant]
     Active Substance: AVOCADO OIL\SOYBEAN OIL
     Indication: ARTHRALGIA
     Dosage: 300 MG DAILY, PRN
     Route: 048
     Dates: start: 20160311
  9. PEMBROLIZUMAB. [Suspect]
     Active Substance: PEMBROLIZUMAB
     Dosage: 10 MG/KG, QOW
     Route: 042
     Dates: start: 20170830, end: 20170830
  10. LOPERAMIDE [Concomitant]
     Active Substance: LOPERAMIDE
     Indication: DIARRHOEA
     Dosage: 2 MG DAILY, PRN
     Route: 048
     Dates: start: 20170622
  11. VITAMIN E [Concomitant]
     Active Substance: .ALPHA.-TOCOPHEROL
     Indication: VITAMIN SUPPLEMENTATION
     Dosage: UNK, PRN
     Route: 048
     Dates: start: 20170802
  12. XANAX [Concomitant]
     Active Substance: ALPRAZOLAM
     Indication: ANXIETY
     Dosage: 0.75 MG DAILY DOSE, PRN
     Route: 048
     Dates: start: 20140220
  13. SEROPLEX [Concomitant]
     Active Substance: ESCITALOPRAM OXALATE
     Indication: DEPRESSION
     Dosage: 20 MG DAILY DOSE, PRN
     Route: 048
     Dates: start: 20141121
  14. MONIN CHANTEAUD KINESAMINE [Concomitant]
     Indication: ARTHRALGIA
     Dosage: 325 MG DAILY, PRN
     Route: 048
     Dates: start: 20160311

REACTIONS (2)
  - Malignant neoplasm progression [Not Recovered/Not Resolved]
  - Renal failure [Not Recovered/Not Resolved]

NARRATIVE: CASE EVENT DATE: 20170904
